FAERS Safety Report 7572955-8 (Version None)
Quarter: 2011Q2

REPORT INFORMATION
  Report Type: 
  Country: None (occurrence: None)
  Receive Date: 20110627
  Receipt Date: 20110621
  Transmission Date: 20111010
  Serious: Yes (Hospitalization)
  Sender: FDA-Public Use
  Company Number: IT-ABBOTT-11P-083-0729048-00

PATIENT
  Age: 11 Year
  Sex: Female

DRUGS (3)
  1. KEPPRA [Suspect]
     Indication: EPILEPSY
     Dosage: DAILY, FILM COATED
     Route: 048
     Dates: start: 20110401, end: 20110501
  2. DEPAKENE [Suspect]
     Indication: ENCEPHALOPATHY
     Dosage: DAILY, GASTRO-RESISTANT TABLET
     Route: 048
     Dates: start: 20110401, end: 20110501
  3. TEGRETOL [Suspect]
     Indication: EPILEPSY
     Route: 048
     Dates: start: 20110401, end: 20110501

REACTIONS (2)
  - DYSTONIA [None]
  - OFF LABEL USE [None]
